FAERS Safety Report 6122249-2 (Version None)
Quarter: 2009Q1

REPORT INFORMATION
  Report Type: 
  Country: None (occurrence: None)
  Receive Date: 20090316
  Receipt Date: 20090316
  Transmission Date: 20090719
  Serious: Yes (Other)
  Sender: FDA-Public Use
  Company Number: None

PATIENT
  Age: 75 Year
  Sex: Female
  Weight: 41.7309 kg

DRUGS (1)
  1. AMANTADINE HCL [Suspect]
     Indication: PARKINSON'S DISEASE
     Dosage: ONE CAPSULE TWICE DAILY
     Dates: start: 20090114, end: 20090305

REACTIONS (3)
  - LIVEDO RETICULARIS [None]
  - OEDEMA PERIPHERAL [None]
  - VISION BLURRED [None]
